FAERS Safety Report 18593511 (Version 1)
Quarter: 2020Q4

REPORT INFORMATION
  Report Type: Other
  Country: AR (occurrence: AR)
  Receive Date: 20201209
  Receipt Date: 20201209
  Transmission Date: 20210114
  Serious: No
  Sender: FDA-Public Use
  Company Number: AR-ROCHE-2726588

PATIENT
  Sex: Male

DRUGS (1)
  1. OCREVUS [Suspect]
     Active Substance: OCRELIZUMAB
     Indication: MULTIPLE SCLEROSIS
     Dosage: DOSE AND FREQUENCY: UNKNOWN
     Route: 042
     Dates: start: 20200302

REACTIONS (1)
  - SARS-CoV-2 test positive [Unknown]
